FAERS Safety Report 23479649 (Version 1)
Quarter: 2024Q1

REPORT INFORMATION
  Report Type: Spontaneous
  Country: US (occurrence: US)
  Receive Date: 20240205
  Receipt Date: 20240205
  Transmission Date: 20240410
  Serious: No
  Sender: FDA-Public Use
  Company Number: US-UCBSA-2023002521

PATIENT

DRUGS (1)
  1. KEPPRA XR [Suspect]
     Active Substance: LEVETIRACETAM
     Indication: Product used for unknown indication
     Dosage: 750 MG TABLET IN THE MORNING AND A 1000 MG TABLET EVERY EVENING

REACTIONS (2)
  - Inability to afford medication [Unknown]
  - Off label use [Unknown]
